FAERS Safety Report 4927346-2 (Version None)
Quarter: 2006Q1

REPORT INFORMATION
  Report Type: 
  Country: None (occurrence: None)
  Receive Date: 20060228
  Receipt Date: 20050825
  Transmission Date: 20060701
  Serious: Yes (Other)
  Sender: FDA-Public Use
  Company Number: US-GLAXOSMITHKLINE-A0571827A

PATIENT
  Age: 28 Year
  Sex: Female
  Weight: 125.5 kg

DRUGS (5)
  1. IMITREX [Suspect]
     Indication: MIGRAINE
     Dates: start: 20050815
  2. ZYRTEC [Concomitant]
     Route: 048
  3. ADVAIR DISKUS 100/50 [Concomitant]
     Route: 055
  4. ORTHO-NOVUM 1/35 [Concomitant]
     Route: 048
  5. FIORINAL [Concomitant]
     Indication: MIGRAINE
     Route: 048

REACTIONS (2)
  - CONVULSION [None]
  - POSTICTAL STATE [None]
